FAERS Safety Report 6440692-9 (Version None)
Quarter: 2009Q4

REPORT INFORMATION
  Report Type: 
  Country: None (occurrence: None)
  Receive Date: 20091116
  Receipt Date: 20091106
  Transmission Date: 20100525
  Serious: Yes (Hospitalization)
  Sender: FDA-Public Use
  Company Number: JP-BIOGENIDEC-2009BI007621

PATIENT
  Age: 36 Year
  Sex: Male

DRUGS (15)
  1. AVONEX [Suspect]
     Indication: RELAPSING-REMITTING MULTIPLE SCLEROSIS
     Route: 030
     Dates: start: 20080725
  2. PRIDOL [Concomitant]
     Indication: RELAPSING-REMITTING MULTIPLE SCLEROSIS
     Dates: start: 20080807, end: 20080809
  3. PRIDOL [Concomitant]
     Dates: start: 20080904, end: 20080906
  4. PRIDOL [Concomitant]
     Dates: start: 20090723, end: 20090725
  5. PRIDOL [Concomitant]
     Dates: start: 20080821, end: 20080823
  6. AZANIN [Concomitant]
     Indication: RELAPSING-REMITTING MULTIPLE SCLEROSIS
     Route: 048
     Dates: start: 20080201
  7. KETAS [Concomitant]
     Dates: start: 20080725
  8. METHYCOBAL [Concomitant]
     Dates: start: 20090725
  9. MUCODYNE [Concomitant]
     Dates: start: 20090725
  10. LIPITOR [Concomitant]
     Dates: start: 20080725
  11. MAGNESIUM OXIDE [Concomitant]
     Dates: start: 20080725
  12. PURSENNID [Concomitant]
     Dates: start: 20080725, end: 20080821
  13. IBRUPROFEN [Concomitant]
     Dates: start: 20080725
  14. ADETPHOS [Concomitant]
     Dates: start: 20080725
  15. MUCOSTA [Concomitant]
     Dates: start: 20080725

REACTIONS (7)
  - HEPATIC FUNCTION ABNORMAL [None]
  - HYPERCREATININAEMIA [None]
  - INFLUENZA LIKE ILLNESS [None]
  - MENINGITIS BACTERIAL [None]
  - MULTIPLE SCLEROSIS RELAPSE [None]
  - NEUTROPHIL COUNT INCREASED [None]
  - OPTIC NEURITIS [None]
